FAERS Safety Report 20389461 (Version 1)
Quarter: 2022Q1

REPORT INFORMATION
  Report Type: Spontaneous
  Country: GB (occurrence: GB)
  Receive Date: 20220128
  Receipt Date: 20220128
  Transmission Date: 20220424
  Serious: Yes (Hospitalization)
  Sender: FDA-Public Use
  Company Number: GB-CELGENE-GBR-20220103549

PATIENT
  Age: 90 Year
  Sex: Male

DRUGS (1)
  1. LENALIDOMIDE [Suspect]
     Active Substance: LENALIDOMIDE
     Indication: Plasma cell myeloma
     Dosage: 5MG
     Route: 048
     Dates: start: 20151023

REACTIONS (1)
  - Atrioventricular block complete [Not Recovered/Not Resolved]

NARRATIVE: CASE EVENT DATE: 20220104
